FAERS Safety Report 12856822 (Version 3)
Quarter: 2016Q4

REPORT INFORMATION
  Report Type: Spontaneous
  Country: US (occurrence: US)
  Receive Date: 20161018
  Receipt Date: 20161129
  Transmission Date: 20170207
  Serious: Yes (Other)
  Sender: FDA-Public Use
  Company Number: US-PFIZER INC-2016478902

PATIENT
  Age: 67 Year
  Sex: Male

DRUGS (1)
  1. GABAPENTIN. [Suspect]
     Active Substance: GABAPENTIN
     Indication: NEUROPATHY PERIPHERAL
     Dosage: UNK
     Route: 048

REACTIONS (7)
  - Condition aggravated [Recovered/Resolved]
  - Abasia [Unknown]
  - Psoriasis [Recovered/Resolved]
  - Onychomadesis [Unknown]
  - Inflammation [Unknown]
  - Pain in extremity [Unknown]
  - Product use issue [Unknown]
